FAERS Safety Report 5235841-4 (Version None)
Quarter: 2007Q1

REPORT INFORMATION
  Report Type: 
  Country: None (occurrence: None)
  Receive Date: 20070212
  Receipt Date: 20070207
  Transmission Date: 20070707
  Serious: Yes (Hospitalization, Other)
  Sender: FDA-Public Use
  Company Number: FRWYE576607FEB07

PATIENT
  Age: 22 Month
  Sex: Female
  Weight: 10 kg

DRUGS (3)
  1. ADVIL [Suspect]
     Dosage: UNKNOWN
     Route: 048
     Dates: start: 20061226, end: 20061227
  2. DOLIPRANE [Suspect]
     Dosage: UNKNOWN
     Dates: start: 20061226
  3. PRIMALAN [Suspect]
     Dosage: UNKNOWN
     Dates: start: 20061226

REACTIONS (4)
  - BLOOD GLUCOSE INCREASED [None]
  - BLOOD SODIUM DECREASED [None]
  - CONDITION AGGRAVATED [None]
  - VARICELLA [None]
